FAERS Safety Report 20635253 (Version 1)
Quarter: 2022Q1

REPORT INFORMATION
  Report Type: Report from Study
  Country: DE (occurrence: DE)
  Receive Date: 20220325
  Receipt Date: 20220325
  Transmission Date: 20220423
  Serious: Yes (Hospitalization)
  Sender: FDA-Public Use
  Company Number: DE-JNJFOC-20220323221

PATIENT

DRUGS (1)
  1. DARZALEX [Suspect]
     Active Substance: DARATUMUMAB
     Indication: Amyloidosis
     Route: 065
     Dates: start: 20210909, end: 202111

REACTIONS (3)
  - Acute kidney injury [Recovered/Resolved]
  - Off label use [Unknown]
  - Product use in unapproved indication [Unknown]
